FAERS Safety Report 4868612-9 (Version None)
Quarter: 2005Q4

REPORT INFORMATION
  Report Type: 
  Country: None (occurrence: None)
  Receive Date: 20051223
  Receipt Date: 20051215
  Transmission Date: 20060501
  Serious: Yes (Hospitalization, Other)
  Sender: FDA-Public Use
  Company Number: 2005169333

PATIENT
  Sex: Female

DRUGS (19)
  1. NEURONTIN [Suspect]
     Indication: BIPOLAR DISORDER
     Dosage: 3 IN 1 D
     Dates: start: 20010101
  2. LITHIUM [Suspect]
     Indication: ILL-DEFINED DISORDER
  3. ALL OTHER THEAPEUTIC PRODUCTS (ALLOTHER THERAPEUTIC PRODUCTS) [Suspect]
     Indication: ILL-DEFINED DISORDER
  4. ZYPREXA [Concomitant]
  5. WELLBUTRIN [Concomitant]
  6. DEPAKENE [Concomitant]
  7. TEGRETOL [Concomitant]
  8. TRILEPTAL [Concomitant]
  9. RISPERIDONE [Concomitant]
  10. LEVOXYL [Concomitant]
  11. DESIPRAMINE HCL [Concomitant]
  12. PROZAC [Concomitant]
  13. ABILIFY (ARIPIPRAZONE) [Concomitant]
  14. EFFEXOR [Concomitant]
  15. MELLARIL [Concomitant]
  16. THORAZINE [Concomitant]
  17. CLOMIPRAMINE HCL [Concomitant]
  18. KLONOPIN [Concomitant]
  19. ROCEPHIN [Concomitant]

REACTIONS (41)
  - ANOREXIA [None]
  - BACK PAIN [None]
  - BLINDNESS [None]
  - BODY HEIGHT DECREASED [None]
  - COUGH [None]
  - CYSTITIS [None]
  - DEAFNESS [None]
  - DEHYDRATION [None]
  - DEPRESSION [None]
  - EYE DISORDER [None]
  - GASTRIC ULCER HAEMORRHAGE [None]
  - GASTROINTESTINAL MOTILITY DISORDER [None]
  - HIATUS HERNIA [None]
  - HOT FLUSH [None]
  - HYPERHIDROSIS [None]
  - HYPERSOMNIA [None]
  - HYPOAESTHESIA [None]
  - KIDNEY INFECTION [None]
  - LETHARGY [None]
  - LIVER DISORDER [None]
  - MYDRIASIS [None]
  - NASAL CONGESTION [None]
  - NECK PAIN [None]
  - NEPHROLITHIASIS [None]
  - OEDEMA PERIPHERAL [None]
  - OESOPHAGEAL ULCER HAEMORRHAGE [None]
  - OSTEOPOROSIS [None]
  - PAIN [None]
  - PANCREATIC DISORDER [None]
  - PARAESTHESIA [None]
  - PYREXIA [None]
  - RENAL DISORDER [None]
  - RESTLESSNESS [None]
  - RHEUMATOID ARTHRITIS [None]
  - RHINORRHOEA [None]
  - SKIN LACERATION [None]
  - SUICIDE ATTEMPT [None]
  - TENSION HEADACHE [None]
  - TREATMENT NONCOMPLIANCE [None]
  - VOMITING [None]
  - WEIGHT INCREASED [None]
